FAERS Safety Report 9284253 (Version 1)
Quarter: 2013Q2

REPORT INFORMATION
  Report Type: Spontaneous
  Country: US (occurrence: US)
  Receive Date: 20130510
  Receipt Date: 20130510
  Transmission Date: 20140414
  Serious: Yes (Hospitalization, Other)
  Sender: FDA-Public Use
  Company Number: US-BRISTOL-MYERS SQUIBB COMPANY-18861781

PATIENT
  Sex: Female
  Weight: 131.52 kg

DRUGS (4)
  1. BYDUREON [Suspect]
  2. METFORMIN HCL [Suspect]
  3. JANUVIA [Suspect]
  4. METHADONE [Concomitant]

REACTIONS (6)
  - Blood glucose increased [Unknown]
  - Weight decreased [Unknown]
  - Nausea [Unknown]
  - Constipation [Unknown]
  - Abdominal pain upper [Unknown]
  - Glycosylated haemoglobin increased [Unknown]
